FAERS Safety Report 6895490-9 (Version None)
Quarter: 2010Q3

REPORT INFORMATION
  Report Type: 
  Country: None (occurrence: None)
  Receive Date: 20100802
  Receipt Date: 20100726
  Transmission Date: 20110219
  Serious: Yes (Hospitalization)
  Sender: FDA-Public Use
  Company Number: US-BRISTOL-MYERS SQUIBB COMPANY-15210222

PATIENT
  Age: 72 Year
  Sex: Female
  Weight: 54 kg

DRUGS (7)
  1. DASATINIB [Suspect]
     Indication: BREAST CANCER
     Dosage: 50MG; LOT NO:9B51205,EXP.DATE:31MAR2012 09JUN TO 08JUL2010
     Route: 048
     Dates: start: 20100609, end: 20100708
  2. NORVASC [Concomitant]
     Indication: HYPERTENSION
  3. ZOFRAN [Concomitant]
     Indication: NAUSEA
  4. VITAMIN D [Concomitant]
     Indication: VITAMIN SUPPLEMENTATION
  5. ASCORBIC ACID [Concomitant]
     Indication: VITAMIN SUPPLEMENTATION
  6. ALEVE (CAPLET) [Concomitant]
     Indication: NIGHT SWEATS
     Dosage: PRN
  7. ACETAMINOPHEN [Concomitant]
     Indication: HEADACHE
     Dosage: 1 DF=500MG 1 TO 2 TABS

REACTIONS (3)
  - DYSPNOEA [None]
  - PLEURAL EFFUSION [None]
  - RESPIRATORY FAILURE [None]
